FAERS Safety Report 4941529-7 (Version None)
Quarter: 2006Q1

REPORT INFORMATION
  Report Type: 
  Country: None (occurrence: None)
  Receive Date: 20060308
  Receipt Date: 20060228
  Transmission Date: 20060701
  Serious: Yes (Hospitalization)
  Sender: FDA-Public Use
  Company Number: 2006029796

PATIENT
  Age: 77 Year
  Sex: Male
  Weight: 65 kg

DRUGS (9)
  1. NEURONTIN [Suspect]
     Indication: ILL-DEFINED DISORDER
     Dosage: 1200 MG (3 IN 1 D), ORAL
     Route: 048
     Dates: start: 20051110, end: 20051121
  2. MEDROL [Suspect]
     Indication: ILL-DEFINED DISORDER
     Dosage: 32 MG (16 MG, 1 D), ORAL
     Route: 048
     Dates: start: 20051110, end: 20051128
  3. OMEPRAZOLE [Suspect]
     Indication: ILL-DEFINED DISORDER
     Dosage: 10 MG (1 IN 1 D), ORAL
     Route: 048
     Dates: end: 20051118
  4. ZOCOR [Suspect]
     Indication: ILL-DEFINED DISORDER
     Dosage: 40 MG (1 IN 1 D), ORAL
     Route: 049
     Dates: end: 20051118
  5. EXELON [Suspect]
     Indication: ILL-DEFINED DISORDER
     Dosage: 9 MG (4.5 MG, 2 IN 1 D), ORAL
     Route: 048
     Dates: end: 20051118
  6. ASPEGIC 1000 [Suspect]
     Indication: ILL-DEFINED DISORDER
     Dosage: 1 DF (1 D), ORAL
     Route: 048
     Dates: end: 20051118
  7. UN-ALFA (ALFACALCIDOL) [Concomitant]
  8. ADANCOR (NICORANDIL) [Concomitant]
  9. LEVOTHYROXINE SODIUM [Concomitant]

REACTIONS (5)
  - ABNORMAL BEHAVIOUR [None]
  - ANXIETY [None]
  - DELIRIUM [None]
  - DRUG INEFFECTIVE [None]
  - SUBDURAL HAEMATOMA [None]
